FAERS Safety Report 22249461 (Version 2)
Quarter: 2023Q2

REPORT INFORMATION
  Report Type: Spontaneous
  Country: US (occurrence: US)
  Receive Date: 20230425
  Receipt Date: 20230522
  Transmission Date: 20230721
  Serious: No
  Sender: FDA-Public Use
  Company Number: US-SA-SAC20230421001093

PATIENT
  Age: 50 Year
  Sex: Male

DRUGS (1)
  1. CERDELGA [Suspect]
     Active Substance: ELIGLUSTAT
     Indication: Gaucher^s disease
     Dosage: 84 MG, BID
     Route: 048
     Dates: start: 20220617

REACTIONS (3)
  - Fracture [Unknown]
  - Road traffic accident [Unknown]
  - Fall [Unknown]

NARRATIVE: CASE EVENT DATE: 20230416
